FAERS Safety Report 8381286-8 (Version None)
Quarter: 2012Q2

REPORT INFORMATION
  Report Type: 
  Country: None (occurrence: None)
  Receive Date: 20120523
  Receipt Date: 20120516
  Transmission Date: 20120825
  Serious: Yes (Hospitalization)
  Sender: FDA-Public Use
  Company Number: US-ELI_LILLY_AND_COMPANY-US201204001747

PATIENT
  Sex: Female
  Weight: 58.957 kg

DRUGS (4)
  1. INSULIN [Concomitant]
     Dosage: 4 U, UNKNOWN
     Route: 058
  2. BYDUREON [Suspect]
     Indication: TYPE 2 DIABETES MELLITUS
     Dosage: 2 MG, WEEKLY (1/W)
     Route: 058
     Dates: start: 20120201
  3. NOVOLOG [Concomitant]
     Indication: TYPE 2 DIABETES MELLITUS
     Dosage: UNK, PRN
  4. KOMBIGLYZE XR [Concomitant]
     Indication: TYPE 2 DIABETES MELLITUS
     Dosage: UNK
     Route: 048

REACTIONS (8)
  - OFF LABEL USE [None]
  - DYSURIA [None]
  - INJECTION SITE PAIN [None]
  - BLOOD URINE PRESENT [None]
  - INFECTION [None]
  - BLOOD GLUCOSE INCREASED [None]
  - HAEMORRHAGE [None]
  - INJECTION SITE HAEMORRHAGE [None]
